FAERS Safety Report 18685088 (Version 1)
Quarter: 2020Q4

REPORT INFORMATION
  Report Type: Report from Study
  Country: CA (occurrence: CA)
  Receive Date: 20201230
  Receipt Date: 20201230
  Transmission Date: 20210114
  Serious: Yes (Death, Hospitalization, Other)
  Sender: FDA-Public Use
  Company Number: CA-PFIZER INC-2020515994

PATIENT
  Age: 75 Year
  Sex: Female
  Weight: 43 kg

DRUGS (5)
  1. INLYTA [Suspect]
     Active Substance: AXITINIB
     Dosage: UNK
     Route: 065
  2. PEMBROLIZUMAB. [Suspect]
     Active Substance: PEMBROLIZUMAB
     Indication: RENAL CANCER METASTATIC
     Dosage: 200 MG, EVERY 3 WEEKS
     Route: 042
  3. INLYTA [Suspect]
     Active Substance: AXITINIB
     Dosage: 5 MG, 1X/DAY
     Route: 065
  4. PEMBROLIZUMAB. [Suspect]
     Active Substance: PEMBROLIZUMAB
     Dosage: 200 MG, EVERY 3 WEEKS
     Route: 042
  5. PEMBROLIZUMAB. [Suspect]
     Active Substance: PEMBROLIZUMAB
     Dosage: 200 MG, EVERY 3 WEEKS
     Route: 042

REACTIONS (28)
  - Appetite disorder [Unknown]
  - Fear [Unknown]
  - Insomnia [Unknown]
  - Odynophagia [Unknown]
  - Sleep disorder [Unknown]
  - Taste disorder [Unknown]
  - Death [Fatal]
  - Fatigue [Unknown]
  - Weight decreased [Unknown]
  - Anger [Unknown]
  - Cognitive disorder [Unknown]
  - Somnolence [Unknown]
  - Stomatitis [Unknown]
  - Cough [Unknown]
  - Dyspnoea [Unknown]
  - Memory impairment [Unknown]
  - Disturbance in attention [Unknown]
  - Decreased appetite [Unknown]
  - Anxiety [Unknown]
  - Malaise [Unknown]
  - Pulse abnormal [Unknown]
  - Vital functions abnormal [Unknown]
  - Dysphagia [Unknown]
  - Frustration tolerance decreased [Unknown]
  - Gastrooesophageal reflux disease [Unknown]
  - Pain [Unknown]
  - Nausea [Unknown]
  - Chest pain [Unknown]
